FAERS Safety Report 8596467-8 (Version None)
Quarter: 2012Q3

REPORT INFORMATION
  Report Type: 
  Country: None (occurrence: None)
  Receive Date: 20120815
  Receipt Date: 20120806
  Transmission Date: 20120928
  Serious: Yes (Other)
  Sender: FDA-Public Use
  Company Number: US-ACTELION-A-NJ2012-69895

PATIENT
  Age: 78 Year
  Sex: Female

DRUGS (4)
  1. LETAIRIS [Concomitant]
  2. COUMADIN [Concomitant]
  3. ADCIRCA [Concomitant]
  4. EPOPROSTENOL SODIUM [Suspect]
     Indication: PULMONARY ARTERIAL HYPERTENSION
     Dosage: 67.5 NG/KG, PER MIN
     Route: 041
     Dates: start: 20101112

REACTIONS (3)
  - APPLICATION SITE BLEEDING [None]
  - APPLICATION SITE IRRITATION [None]
  - BREAST CANCER [None]
